FAERS Safety Report 7582863-4 (Version None)
Quarter: 2011Q2

REPORT INFORMATION
  Report Type: 
  Country: None (occurrence: None)
  Receive Date: 20110627
  Receipt Date: 20110627
  Transmission Date: 20111010
  Serious: Yes (Death)
  Sender: FDA-Public Use
  Company Number: None

PATIENT
  Age: 60 Year
  Sex: Male
  Weight: 72.5755 kg

DRUGS (1)
  1. HEPARIN [Suspect]
     Indication: CARDIAC OPERATION
     Dosage: IV DRIP
     Route: 041
     Dates: start: 20100824, end: 20100902

REACTIONS (10)
  - SKIN DISCOLOURATION [None]
  - LEG AMPUTATION [None]
  - HEPARIN-INDUCED THROMBOCYTOPENIA [None]
  - BLOOD PRESSURE DECREASED [None]
  - HEPATIC FAILURE [None]
  - GANGRENE [None]
  - LOCALISED INFECTION [None]
  - UNRESPONSIVE TO STIMULI [None]
  - RENAL FAILURE [None]
  - LETHARGY [None]
